FAERS Safety Report 4367911-7 (Version None)
Quarter: 2004Q2

REPORT INFORMATION
  Report Type: 
  Country: None (occurrence: None)
  Receive Date: 20040527
  Receipt Date: 20040213
  Transmission Date: 20050107
  Serious: Yes (Hospitalization)
  Sender: FDA-Public Use
  Company Number: 203758

PATIENT
  Age: 44 Year
  Sex: Female
  Weight: 88 kg

DRUGS (2)
  1. RAPTIVA [Suspect]
     Indication: PSORIASIS
     Dosage: 84 MG, 1/WEEK, SUBCUTANEOUS
     Route: 058
     Dates: start: 20031120, end: 20031121
  2. METHOTREXATE [Concomitant]

REACTIONS (1)
  - MENINGITIS ASEPTIC [None]
